FAERS Safety Report 4578641-0 (Version None)
Quarter: 2005Q1

REPORT INFORMATION
  Report Type: 
  Country: None (occurrence: None)
  Receive Date: 20050207
  Receipt Date: 20050207
  Transmission Date: 20050727
  Serious: Yes (Disabling, Other)
  Sender: FDA-Public Use
  Company Number: None

PATIENT
  Sex: Female
  Weight: 81.6475 kg

DRUGS (3)
  1. ZOCOR [Suspect]
     Indication: BLOOD CHOLESTEROL INCREASED
     Dosage: 40 MY   ONCE PER DAY   ORAL
     Route: 048
     Dates: start: 19960715, end: 20040515
  2. VIOXX [Concomitant]
  3. DARVOCET [Concomitant]

REACTIONS (7)
  - ASTHENIA [None]
  - FATIGUE [None]
  - NEUROPATHIC PAIN [None]
  - PAIN IN EXTREMITY [None]
  - POST PROCEDURAL PAIN [None]
  - SENSORY LOSS [None]
  - SURGERY [None]
